FAERS Safety Report 8607377-1 (Version None)
Quarter: 2012Q3

REPORT INFORMATION
  Report Type: 
  Country: None (occurrence: None)
  Receive Date: 20120821
  Receipt Date: 20120817
  Transmission Date: 20120928
  Serious: No
  Sender: FDA-Public Use
  Company Number: US-PFIZER INC-2012197559

PATIENT
  Age: 92 Year
  Sex: Female
  Weight: 54.422 kg

DRUGS (6)
  1. CELEBREX [Suspect]
     Dosage: 200 MG, 1X/DAY
  2. ISOSORBIDE [Concomitant]
     Dosage: UNK
  3. SPIRONOLACTONE [Concomitant]
     Dosage: UNK
  4. FEOSOL [Concomitant]
     Dosage: UNK
  5. METOPROLOL [Concomitant]
     Dosage: UNK
  6. CELEBREX [Suspect]
     Indication: PAIN IN EXTREMITY
     Dosage: 200 MG, 1X/DAY
     Route: 048
     Dates: start: 20120713

REACTIONS (5)
  - DRUG INEFFECTIVE [None]
  - HEARING IMPAIRED [None]
  - PAIN IN EXTREMITY [None]
  - VISUAL IMPAIRMENT [None]
  - SCIATICA [None]
